FAERS Safety Report 6847765-7 (Version None)
Quarter: 2010Q3

REPORT INFORMATION
  Report Type: 
  Country: None (occurrence: None)
  Receive Date: 20100716
  Receipt Date: 20100714
  Transmission Date: 20110219
  Serious: Yes (Other)
  Sender: FDA-Public Use
  Company Number: PHHY2010BR46274

PATIENT
  Age: 46 Year
  Sex: Female

DRUGS (1)
  1. DIOVAN TRIPLE [Suspect]
     Dosage: 160/5/12.5 MG
     Route: 048

REACTIONS (1)
  - GALLBLADDER OPERATION [None]
